FAERS Safety Report 7968655-2 (Version None)
Quarter: 2011Q4

REPORT INFORMATION
  Report Type: 
  Country: None (occurrence: None)
  Receive Date: 20111209
  Receipt Date: 20111202
  Transmission Date: 20120403
  Serious: Yes (Hospitalization)
  Sender: FDA-Public Use
  Company Number: US-GLAXOSMITHKLINE-A0957349A

PATIENT
  Age: 44 Year
  Sex: Male
  Weight: 106.6 kg

DRUGS (12)
  1. AMBIEN [Concomitant]
     Dates: start: 20080101
  2. IMIPRAMINE [Concomitant]
     Dates: start: 20080101
  3. RITALIN [Concomitant]
     Dates: start: 20080101, end: 20110722
  4. MIRTAZAPINE [Concomitant]
     Dates: start: 20110622
  5. LAMOTRIGINE [Suspect]
     Indication: DEPRESSION
     Dosage: 25MG PER DAY
     Route: 048
     Dates: start: 20110804, end: 20110814
  6. BACLOFEN [Concomitant]
     Dates: start: 20110310
  7. PERCOCET [Concomitant]
     Dates: start: 20090101
  8. KLONOPIN [Concomitant]
     Dates: start: 20080101
  9. RISPERIDONE [Concomitant]
     Dates: start: 20110622
  10. FENOFIBRATE [Concomitant]
     Dates: start: 20080101
  11. VILAZODONE [Suspect]
     Indication: DEPRESSION
     Dates: start: 20110713, end: 20110728
  12. INVESTIGATIONAL DRUG [Suspect]
     Indication: RENAL CELL CARCINOMA
     Dates: start: 20101102, end: 20110809

REACTIONS (1)
  - MENTAL STATUS CHANGES [None]
